FAERS Safety Report 22863220 (Version 3)
Quarter: 2023Q4

REPORT INFORMATION
  Report Type: Report from Study
  Country: JP (occurrence: JP)
  Receive Date: 20230824
  Receipt Date: 20231005
  Transmission Date: 20240109
  Serious: Yes (Death, Other)
  Sender: FDA-Public Use
  Company Number: JP-CELLTRION INC.-2023JP016652

PATIENT

DRUGS (21)
  1. INVESTIGATIONAL BIOSIMILARS [Suspect]
     Active Substance: INVESTIGATIONAL BIOSIMILARS
     Indication: HER2 positive gastric cancer
     Dosage: 399 MILLIGRAM, QD
     Route: 041
     Dates: start: 20210602, end: 20210602
  2. INVESTIGATIONAL BIOSIMILARS [Suspect]
     Active Substance: INVESTIGATIONAL BIOSIMILARS
     Dosage: 298 MILLIGRAM, QD
     Route: 041
     Dates: start: 20210623, end: 20210623
  3. INVESTIGATIONAL BIOSIMILARS [Suspect]
     Active Substance: INVESTIGATIONAL BIOSIMILARS
     Dosage: 298 MILLIGRAM, QD
     Route: 041
     Dates: start: 20210721, end: 20210721
  4. INVESTIGATIONAL BIOSIMILARS [Suspect]
     Active Substance: INVESTIGATIONAL BIOSIMILARS
     Dosage: 298 MILLIGRAM, QD
     Route: 041
     Dates: start: 20210902, end: 20210902
  5. OXALIPLATIN [Concomitant]
     Active Substance: OXALIPLATIN
     Indication: HER2 positive gastric cancer
     Dosage: 150 MILLIGRAM, QD
     Route: 041
     Dates: start: 20210602, end: 20210602
  6. OXALIPLATIN [Concomitant]
     Active Substance: OXALIPLATIN
     Dosage: 150 MILLIGRAM, QD
     Route: 041
     Dates: start: 20210623, end: 20210623
  7. OXALIPLATIN [Concomitant]
     Active Substance: OXALIPLATIN
     Dosage: 150 MILLIGRAM, QD
     Route: 041
     Dates: start: 20210721, end: 20210721
  8. OXALIPLATIN [Concomitant]
     Active Substance: OXALIPLATIN
     Dosage: 150 MILLIGRAM, QD
     Route: 041
     Dates: start: 20210902, end: 20210902
  9. GIMERACIL\OTERACIL\TEGAFUR [Concomitant]
     Active Substance: GIMERACIL\OTERACIL POTASSIUM\TEGAFUR
     Indication: HER2 positive gastric cancer
     Dosage: 1120 MILLIGRAM, QD
     Route: 048
     Dates: start: 20210602, end: 20210616
  10. GIMERACIL\OTERACIL\TEGAFUR [Concomitant]
     Active Substance: GIMERACIL\OTERACIL POTASSIUM\TEGAFUR
     Dosage: 1120 MILLIGRAM, QD
     Route: 048
     Dates: start: 20210623, end: 20210705
  11. GIMERACIL\OTERACIL\TEGAFUR [Concomitant]
     Active Substance: GIMERACIL\OTERACIL POTASSIUM\TEGAFUR
     Dosage: 1120 MILLIGRAM, QD
     Route: 048
     Dates: start: 20210721, end: 20210803
  12. GIMERACIL\OTERACIL\TEGAFUR [Concomitant]
     Active Substance: GIMERACIL\OTERACIL POTASSIUM\TEGAFUR
     Dosage: 1120 MILLIGRAM, QD
     Route: 048
     Dates: start: 20210902, end: 20210916
  13. GRANISETRON [Concomitant]
     Active Substance: GRANISETRON
     Indication: Prophylaxis of nausea and vomiting
     Dosage: 3 MILLIGRAM, ON DAY1 OF EACH COURSE
     Route: 065
     Dates: start: 20210602, end: 20210902
  14. DEXAMETHASONE [Concomitant]
     Active Substance: DEXAMETHASONE
     Indication: Prophylaxis of nausea and vomiting
     Dosage: 3.3 MILLIGRAM ON DAY1 OF EACH COURSE
     Route: 065
     Dates: start: 20210602, end: 20210902
  15. SULPIRIDE [Concomitant]
     Active Substance: SULPIRIDE
     Indication: Depression
     Dosage: 30 MILLIGRAM, QD
     Route: 065
  16. SULPIRIDE [Concomitant]
     Active Substance: SULPIRIDE
     Dosage: 30 MILLIGRAM, QD
     Route: 065
     Dates: end: 20210929
  17. LORAZEPAM [Concomitant]
     Active Substance: LORAZEPAM
     Indication: Depression
     Dosage: 1 MILLIGRAM, QD
     Route: 065
  18. LORAZEPAM [Concomitant]
     Active Substance: LORAZEPAM
     Dosage: 1 MILLIGRAM, QD
     Route: 065
     Dates: end: 20210929
  19. APREPITANT [Concomitant]
     Active Substance: APREPITANT
     Indication: Prophylaxis of nausea and vomiting
     Dosage: 125 MILLIGRAM, ON DAY1
     Route: 065
     Dates: start: 20210602, end: 20210902
  20. APREPITANT [Concomitant]
     Active Substance: APREPITANT
     Dosage: 80 MILLIGRAM, ON DAY2 AND 3
     Route: 065
     Dates: start: 20210602, end: 20210902
  21. EDOXABAN TOSYLATE [Concomitant]
     Active Substance: EDOXABAN TOSYLATE
     Indication: Venous thrombosis limb
     Dosage: 30 MILLIGRAM, QD
     Route: 065
     Dates: start: 20210517, end: 20211019

REACTIONS (7)
  - HER2 positive gastric cancer [Fatal]
  - Hydronephrosis [Recovered/Resolved]
  - Neuropathy peripheral [Recovering/Resolving]
  - Aspartate aminotransferase increased [Recovered/Resolved]
  - Blood creatinine increased [Recovered/Resolved]
  - Neutrophil count decreased [Recovered/Resolved]
  - Underdose [Unknown]

NARRATIVE: CASE EVENT DATE: 20210714
